FAERS Safety Report 8879981 (Version 1)
Quarter: 2012Q4

REPORT INFORMATION
  Report Type: 
  Country: GR (occurrence: GR)
  Receive Date: 20121101
  Receipt Date: 20121101
  Transmission Date: 20130627
  Serious: Yes (Other)
  Sender: FDA-Public Use
  Company Number: PHHY2012GR097343

PATIENT
  Age: 70 Year
  Sex: Female

DRUGS (2)
  1. GLIVEC [Suspect]
     Indication: GASTROINTESTINAL STROMAL TUMOUR
     Dosage: 400 mg, UNK
     Dates: start: 200909
  2. GLIVEC [Suspect]
     Dosage: 400 mg, UNK
     Dates: end: 20120910

REACTIONS (5)
  - Lung disorder [Unknown]
  - Pain of skin [Unknown]
  - Fatigue [Unknown]
  - Bone pain [Unknown]
  - Pain in extremity [Unknown]
